FAERS Safety Report 15094419 (Version 1)
Quarter: 2018Q2

REPORT INFORMATION
  Report Type: Spontaneous
  Country: IT (occurrence: IT)
  Receive Date: 20180630
  Receipt Date: 20180630
  Transmission Date: 20180711
  Serious: Yes (Hospitalization)
  Sender: FDA-Public Use
  Company Number: IT-AUROBINDO-AUR-APL-2018-032926

PATIENT
  Age: 45 Year
  Sex: Male

DRUGS (2)
  1. DEPAKIN [Concomitant]
     Active Substance: VALPROATE SODIUM
     Indication: PRODUCT USED FOR UNKNOWN INDICATION
     Dosage: 1500 MILLIGRAM
     Route: 065
  2. RISPERIDONE FILM-COATED TABLETS [Suspect]
     Active Substance: RISPERIDONE
     Indication: DELUSIONAL DISORDER, PERSECUTORY TYPE
     Dosage: 6 MILLIGRAM, DAILY
     Route: 048
     Dates: start: 20141201, end: 20151201

REACTIONS (1)
  - Convulsive threshold lowered [Unknown]

NARRATIVE: CASE EVENT DATE: 20151201
